FAERS Safety Report 7098470-6 (Version None)
Quarter: 2010Q4

REPORT INFORMATION
  Report Type: 
  Country: None (occurrence: None)
  Receive Date: 20101112
  Receipt Date: 20101102
  Transmission Date: 20110411
  Serious: Yes (Life-Threatening)
  Sender: FDA-Public Use
  Company Number: AT-SANOFI-AVENTIS-2010SA066828

PATIENT
  Age: 76 Year
  Sex: Male
  Weight: 83 kg

DRUGS (7)
  1. MULTAQ [Suspect]
     Route: 048
     Dates: start: 20100501, end: 20100901
  2. MIDAZOLAM HCL [Suspect]
     Dates: start: 20100901
  3. CONCOR [Concomitant]
     Indication: ATRIAL FIBRILLATION
     Route: 048
  4. OLMETEC [Concomitant]
     Indication: HYPERTENSION
     Route: 048
  5. PLAVIX [Concomitant]
     Route: 048
  6. PLAVIX [Concomitant]
     Route: 048
  7. ASPIRIN [Concomitant]
     Indication: HYPERTENSION
     Route: 048

REACTIONS (2)
  - BRADYCARDIA [None]
  - CARDIAC ARREST [None]
